FAERS Safety Report 8845753 (Version 1)
Quarter: 2012Q4

REPORT INFORMATION
  Report Type: 
  Country: US (occurrence: US)
  Receive Date: 20121017
  Receipt Date: 20121017
  Transmission Date: 20130627
  Serious: Yes (Other)
  Sender: FDA-Public Use
  Company Number: US-PFIZER INC-2012257579

PATIENT
  Age: 65 Year
  Sex: Male

DRUGS (3)
  1. CHANTIX [Suspect]
     Indication: SMOKING CESSATION THERAPY
     Dosage: UNK
  2. CHANTIX [Suspect]
     Dosage: 1 mg, 2x/day
     Dates: end: 2012
  3. TRAMADOL [Concomitant]
     Dosage: 50 mg, 2x/day

REACTIONS (1)
  - Gastrointestinal injury [Recovered/Resolved]
